FAERS Safety Report 6073915-9 (Version None)
Quarter: 2009Q1

REPORT INFORMATION
  Report Type: 
  Country: None (occurrence: None)
  Receive Date: 20090211
  Receipt Date: 20081216
  Transmission Date: 20090719
  Serious: Yes (Hospitalization, Other)
  Sender: FDA-Public Use
  Company Number: US-MERCK-0807USA02771

PATIENT
  Age: 68 Year
  Sex: Female
  Weight: 109 kg

DRUGS (16)
  1. FOSAMAX [Suspect]
     Indication: OSTEOPOROSIS
     Route: 048
     Dates: start: 20030601, end: 20060301
  2. FOSAMAX [Suspect]
     Route: 048
  3. CORTICOSTEROIDS (UNSPECIFIED) [Concomitant]
     Route: 065
     Dates: start: 20010101
  4. [THERAPY UNSPECIFIED] [Concomitant]
     Indication: HYPERTENSION
     Route: 065
     Dates: start: 20010101, end: 20080101
  5. [THERAPY UNSPECIFIED] [Concomitant]
     Indication: BLOOD CHOLESTEROL INCREASED
     Route: 065
     Dates: start: 19950101
  6. PREDNISONE [Concomitant]
     Indication: SARCOIDOSIS
     Route: 065
     Dates: start: 20000101, end: 20080101
  7. PREDNISONE [Concomitant]
     Indication: ASTHMA
     Route: 065
     Dates: start: 20000101, end: 20080101
  8. CELEBREX [Concomitant]
     Indication: ARTHRITIS
     Route: 065
     Dates: start: 20000101, end: 20050101
  9. AMITRIPTYLINE HYDROCHLORIDE [Concomitant]
     Indication: TEMPOROMANDIBULAR JOINT SYNDROME
     Route: 065
     Dates: start: 20000101, end: 20080101
  10. PROTONIX [Concomitant]
     Indication: REGURGITATION
     Route: 065
     Dates: start: 20000101, end: 20080101
  11. ZOCOR [Concomitant]
     Indication: BLOOD CHOLESTEROL INCREASED
     Route: 065
     Dates: start: 20000101, end: 20080101
  12. KLOR-CON [Concomitant]
     Indication: BLOOD POTASSIUM
     Route: 065
     Dates: start: 20020101, end: 20080101
  13. FLONASE [Concomitant]
     Indication: HYPERSENSITIVITY
     Route: 065
     Dates: start: 20000101, end: 20080101
  14. AMOXICILLIN [Concomitant]
     Indication: ANTIBIOTIC LEVEL
     Route: 065
     Dates: start: 20020101, end: 20080101
  15. BENICAR [Concomitant]
     Indication: BLOOD PRESSURE
     Route: 065
     Dates: start: 20020101, end: 20070101
  16. DURADEX [Concomitant]
     Indication: COUGH
     Route: 065
     Dates: start: 20000101, end: 20080101

REACTIONS (36)
  - ABSCESS [None]
  - ALPHA HAEMOLYTIC STREPTOCOCCAL INFECTION [None]
  - ARTHROPATHY [None]
  - BURSITIS [None]
  - CARDIAC FAILURE CONGESTIVE [None]
  - CEREBROVASCULAR ACCIDENT [None]
  - COUGH [None]
  - DIABETES MELLITUS INADEQUATE CONTROL [None]
  - DRUG ADMINISTRATION ERROR [None]
  - DYSPHONIA [None]
  - FATIGUE [None]
  - FISTULA [None]
  - GINGIVITIS [None]
  - HERPES ZOSTER [None]
  - INFECTION [None]
  - LARYNGITIS [None]
  - LARYNGITIS ALLERGIC [None]
  - MYOFASCIAL PAIN SYNDROME [None]
  - OBESITY [None]
  - OEDEMA PERIPHERAL [None]
  - ORTHOSTATIC HYPOTENSION [None]
  - OSTEITIS DEFORMANS [None]
  - OSTEOMYELITIS [None]
  - OSTEONECROSIS [None]
  - PAIN [None]
  - PNEUMONIA [None]
  - RENAL DISORDER [None]
  - RENAL FAILURE [None]
  - RENAL FAILURE ACUTE [None]
  - RHEUMATOID ARTHRITIS [None]
  - RHINITIS [None]
  - SARCOIDOSIS [None]
  - SCIATICA [None]
  - SHOCK [None]
  - SPINAL COLUMN STENOSIS [None]
  - TEMPOROMANDIBULAR JOINT SYNDROME [None]
